FAERS Safety Report 19376049 (Version 2)
Quarter: 2021Q2

REPORT INFORMATION
  Report Type: Spontaneous
  Country: JP (occurrence: JP)
  Receive Date: 20210604
  Receipt Date: 20210630
  Transmission Date: 20210717
  Serious: Yes (Other)
  Sender: FDA-Public Use
  Company Number: JP-REGENERON PHARMACEUTICALS, INC.-2021-31709

PATIENT

DRUGS (7)
  1. EYLEA [Suspect]
     Active Substance: AFLIBERCEPT
     Dosage: 2 MG, ONCE, RIGHT EYE
     Route: 031
     Dates: start: 20200924, end: 20200924
  2. EYLEA [Suspect]
     Active Substance: AFLIBERCEPT
     Dosage: 2 MG, ONCE, LEFT EYE
     Route: 031
     Dates: start: 20210302, end: 20210302
  3. EYLEA [Suspect]
     Active Substance: AFLIBERCEPT
     Indication: DIABETIC RETINAL OEDEMA
     Dosage: APPROPRIATE DOSE
     Dates: start: 20140305
  4. EYLEA [Suspect]
     Active Substance: AFLIBERCEPT
     Dosage: 2 MG, ONCE, RIGHT EYE
     Route: 031
     Dates: start: 20200618, end: 20200618
  5. EYLEA [Suspect]
     Active Substance: AFLIBERCEPT
     Dosage: 2 MG, ONCE, LEFT EYE
     Route: 031
     Dates: start: 20201201, end: 20201201
  6. GATIFLO [Concomitant]
     Active Substance: GATIFLOXACIN
     Indication: INFECTION PROPHYLAXIS
     Dosage: USED FOR 3 DAYS BEFORE AND AFTER INJECTION, 4 TIMES PER DAY
     Dates: start: 20210227, end: 20210305
  7. EYLEA [Suspect]
     Active Substance: AFLIBERCEPT
     Dosage: 2 MG, ONCE, RIGHT EYE
     Route: 031
     Dates: start: 20201222, end: 20201222

REACTIONS (4)
  - Amaurosis fugax [Recovered/Resolved]
  - Intraocular pressure increased [Unknown]
  - Device use issue [Unknown]
  - Amaurosis fugax [Recovered/Resolved]

NARRATIVE: CASE EVENT DATE: 20200924
